FAERS Safety Report 7716924-3 (Version None)
Quarter: 2011Q3

REPORT INFORMATION
  Report Type: 
  Country: None (occurrence: None)
  Receive Date: 20110829
  Receipt Date: 20110817
  Transmission Date: 20111222
  Serious: Yes (Hospitalization, Other)
  Sender: FDA-Public Use
  Company Number: CA-GENENTECH-287029

PATIENT
  Sex: Female
  Weight: 70 kg

DRUGS (2)
  1. XOLAIR [Suspect]
     Dosage: UNK
  2. XOLAIR [Suspect]
     Indication: ASTHMA
     Dosage: 225 MG, Q2W
     Route: 058
     Dates: start: 20060405

REACTIONS (12)
  - PRODUCTIVE COUGH [None]
  - DYSPHONIA [None]
  - BRONCHITIS [None]
  - DYSPNOEA [None]
  - LUNG DISORDER [None]
  - SPUTUM DISCOLOURED [None]
  - BLOOD CHOLESTEROL INCREASED [None]
  - LUNG INFECTION [None]
  - DEPRESSED MOOD [None]
  - ASTHMA [None]
  - DIABETES MELLITUS [None]
  - STRESS [None]
